FAERS Safety Report 12409654 (Version 1)
Quarter: 2016Q2

REPORT INFORMATION
  Report Type: Spontaneous
  Country: FR (occurrence: FR)
  Receive Date: 20160526
  Receipt Date: 20160526
  Transmission Date: 20160815
  Serious: Yes (Hospitalization, Other)
  Sender: FDA-Public Use
  Company Number: FR-BRISTOL-MYERS SQUIBB COMPANY-BMS-2016-038678

PATIENT
  Age: 85 Year
  Sex: Female

DRUGS (1)
  1. COUMADINE [Suspect]
     Active Substance: WARFARIN SODIUM
     Indication: DEEP VEIN THROMBOSIS
     Dosage: UNK
     Route: 065
     Dates: start: 2015

REACTIONS (6)
  - Epistaxis [Recovered/Resolved]
  - Pruritus [Unknown]
  - International normalised ratio increased [Recovered/Resolved]
  - Overdose [Unknown]
  - Renal failure [Unknown]
  - Rash [Unknown]

NARRATIVE: CASE EVENT DATE: 201603
